FAERS Safety Report 9082001 (Version 1)
Quarter: 2013Q1

REPORT INFORMATION
  Report Type: Spontaneous
  Country: US (occurrence: US)
  Receive Date: 20130218
  Receipt Date: 20130218
  Transmission Date: 20140127
  Serious: No
  Sender: FDA-Public Use
  Company Number: US-PFIZER INC-2013052784

PATIENT
  Age: 5 Year
  Sex: Male

DRUGS (1)
  1. EPIPEN JR [Suspect]
     Dosage: UNK

REACTIONS (3)
  - Accidental exposure to product [Unknown]
  - Contusion [Unknown]
  - Local swelling [Unknown]
